FAERS Safety Report 4821827-8 (Version None)
Quarter: 2005Q4

REPORT INFORMATION
  Report Type: 
  Country: None (occurrence: None)
  Receive Date: 20051103
  Receipt Date: 20051024
  Transmission Date: 20060501
  Serious: Yes (Death, Hospitalization)
  Sender: FDA-Public Use
  Company Number: GXKR2005GB01858

PATIENT
  Age: 60 Year
  Sex: Male
  Weight: 80 kg

DRUGS (7)
  1. CITALOPRAM HYDROBROMIDE [Suspect]
     Indication: DEPRESSION
     Dosage: 20 MG, QD, ORAL; SEE IMAGE
     Route: 048
     Dates: start: 20031201, end: 20031225
  2. CITALOPRAM HYDROBROMIDE [Suspect]
     Indication: DEPRESSION
     Dosage: 20 MG, QD, ORAL; SEE IMAGE
     Route: 048
     Dates: end: 20040113
  3. CITALOPRAM HYDROBROMIDE [Suspect]
     Indication: DEPRESSION
     Dosage: 20 MG, QD, ORAL; SEE IMAGE
     Route: 048
     Dates: start: 20031226
  4. PROCYCLIDINE HYDROCHLORIDE 2MG TAB [Suspect]
     Indication: AKINESIA
     Dosage: 5 MG, BID
     Dates: start: 20040101
  5. SERTRALINE HCL [Suspect]
  6. OXAZEPAM [Suspect]
  7. LEVOTHYROXINE SODIUM [Concomitant]

REACTIONS (16)
  - AKINESIA [None]
  - BRADYKINESIA [None]
  - CATATONIA [None]
  - DELUSION [None]
  - DRUG EFFECT DECREASED [None]
  - DYSKINESIA [None]
  - HEADACHE [None]
  - IMMOBILE [None]
  - MUSCLE SPASMS [None]
  - MUSCLE TWITCHING [None]
  - NAUSEA [None]
  - PARKINSONISM [None]
  - PSYCHOTIC DISORDER [None]
  - ROAD TRAFFIC ACCIDENT [None]
  - SPEECH DISORDER [None]
  - TOXICOLOGIC TEST ABNORMAL [None]
